FAERS Safety Report 25528401 (Version 1)
Quarter: 2025Q3

REPORT INFORMATION
  Report Type: Spontaneous
  Country: US (occurrence: US)
  Receive Date: 20250708
  Receipt Date: 20250708
  Transmission Date: 20251020
  Serious: No
  Sender: ROCHE
  Company Number: US-ROCHE-10000327473

PATIENT
  Sex: Female

DRUGS (3)
  1. XOLAIR PFS [Suspect]
     Active Substance: OMALIZUMAB
     Indication: Asthma
     Dosage: STRENGTH:300MG/2ML
     Route: 058
     Dates: start: 202503
  2. XOLAIR PFS [Suspect]
     Active Substance: OMALIZUMAB
  3. HYRIMOZ [Concomitant]
     Active Substance: ADALIMUMAB-ADAZ

REACTIONS (3)
  - Ill-defined disorder [Unknown]
  - Gastrointestinal disorder [Unknown]
  - Hereditary angioedema [Unknown]
